FAERS Safety Report 19406679 (Version 4)
Quarter: 2021Q3

REPORT INFORMATION
  Report Type: Report from Study
  Country: DE (occurrence: DE)
  Receive Date: 20210611
  Receipt Date: 20210729
  Transmission Date: 20211014
  Serious: Yes (Hospitalization)
  Sender: FDA-Public Use
  Company Number: DE-CLINUVEL INC-2112619

PATIENT
  Sex: Female
  Weight: 80 kg

DRUGS (2)
  1. SCENESSE [Suspect]
     Active Substance: AFAMELANOTIDE
     Indication: PORPHYRIA NON-ACUTE
     Route: 058
     Dates: start: 20210329, end: 20210329
  2. LAMOTRIGINE. [Concomitant]
     Active Substance: LAMOTRIGINE
     Route: 048
     Dates: start: 20130301

REACTIONS (1)
  - Epilepsy [Recovered/Resolved]

NARRATIVE: CASE EVENT DATE: 20210330
